FAERS Safety Report 5206766-5 (Version None)
Quarter: 2006Q4

REPORT INFORMATION
  Report Type: 
  Country: None (occurrence: None)
  Receive Date: 20061031
  Receipt Date: 20060807
  Transmission Date: 20070319
  Serious: Yes (Hospitalization, Other)
  Sender: FDA-Public Use
  Company Number: US200607002690

PATIENT
  Age: 60 Year
  Sex: Female

DRUGS (7)
  1. SYMBYAX [Suspect]
     Indication: BIPOLAR I DISORDER
     Dates: start: 20060421, end: 20060508
  2. COUMADIN [Concomitant]
  3. LISINOPRIL [Concomitant]
  4. LEVOTHYROXINE SODIUM [Concomitant]
  5. ZOCOR [Concomitant]
  6. ZETIA [Concomitant]
  7. ASA TABS (ACETYLSALICYLIC ACID) [Concomitant]

REACTIONS (1)
  - CEREBROVASCULAR ACCIDENT [None]
